FAERS Safety Report 25814389 (Version 2)
Quarter: 2025Q3

REPORT INFORMATION
  Report Type: Spontaneous
  Country: US (occurrence: US)
  Receive Date: 20250917
  Receipt Date: 20250919
  Transmission Date: 20251020
  Serious: Yes (Hospitalization)
  Sender: RIGEL PHARMACEUTICALS
  Company Number: RGL25-002736

PATIENT
  Sex: Male

DRUGS (2)
  1. GAVRETO [Suspect]
     Active Substance: PRALSETINIB
     Indication: Metastases to lung
     Dosage: 300MG, QD
     Route: 048
     Dates: start: 202406
  2. GAVRETO [Suspect]
     Active Substance: PRALSETINIB
     Dosage: 100 MG, QD
     Route: 048
     Dates: start: 20250313, end: 202509

REACTIONS (4)
  - Hospitalisation [Unknown]
  - Disease progression [Unknown]
  - Product prescribing issue [Unknown]
  - Off label use [Unknown]

NARRATIVE: CASE EVENT DATE: 20250101
